FAERS Safety Report 5225585-7 (Version None)
Quarter: 2007Q1

REPORT INFORMATION
  Report Type: 
  Country: None (occurrence: None)
  Receive Date: 20061201
  Receipt Date: 20060808
  Transmission Date: 20070707
  Serious: Yes (Hospitalization)
  Sender: FDA-Public Use
  Company Number: US200608001808

PATIENT
  Age: 25 Year
  Sex: Female

DRUGS (8)
  1. CYMBALTA [Suspect]
     Indication: DEPRESSION
     Dosage: ORAL
     Route: 048
     Dates: start: 20040101
  2. ZOLOFT [Concomitant]
  3. XANAX /USA/ (ALPRAZOLAM) [Concomitant]
  4. GEODON [Concomitant]
  5. TRAZODONE HCL [Concomitant]
  6. CELEXA [Concomitant]
  7. KLONOPIN (CLONAZAPEM) [Concomitant]
  8. VALIUM /NET/(DIAZEPAM) [Concomitant]

REACTIONS (6)
  - ANOREXIA [None]
  - FATIGUE [None]
  - HALLUCINATION, VISUAL [None]
  - INSOMNIA [None]
  - MANIA [None]
  - PANIC ATTACK [None]
